FAERS Safety Report 20512934 (Version 1)
Quarter: 2022Q1

REPORT INFORMATION
  Report Type: Spontaneous
  Country: JP (occurrence: None)
  Receive Date: 20220224
  Receipt Date: 20220224
  Transmission Date: 20220424
  Serious: Yes (Hospitalization, Other)
  Sender: FDA-Public Use
  Company Number: 2021A853092

PATIENT
  Age: 73 Year
  Sex: Male

DRUGS (2)
  1. TAGRISSO [Suspect]
     Active Substance: OSIMERTINIB
     Indication: Non-small cell lung cancer
     Route: 048
     Dates: start: 20200226
  2. TAGRISSO [Suspect]
     Active Substance: OSIMERTINIB
     Indication: Non-small cell lung cancer
     Route: 048
     Dates: end: 20211019

REACTIONS (3)
  - Skin disorder [Recovered/Resolved]
  - Pleural effusion [Recovered/Resolved]
  - Pleurisy bacterial [Recovered/Resolved]

NARRATIVE: CASE EVENT DATE: 20201125
